FAERS Safety Report 5485701-9 (Version None)
Quarter: 2007Q4

REPORT INFORMATION
  Report Type: 
  Country: None (occurrence: None)
  Receive Date: 20071011
  Receipt Date: 20071011
  Transmission Date: 20080405
  Serious: No
  Sender: FDA-Public Use
  Company Number: None

PATIENT
  Age: 57 Year
  Sex: Female
  Weight: 99.7913 kg

DRUGS (1)
  1. VIVITROL [Suspect]
     Indication: ALCOHOLISM
     Dosage: 1 SHOT IN HIP
     Dates: start: 20070601, end: 20070601

REACTIONS (2)
  - INADEQUATE ANALGESIA [None]
  - INJECTION SITE INFLAMMATION [None]
